FAERS Safety Report 13321925 (Version 3)
Quarter: 2017Q2

REPORT INFORMATION
  Report Type: Spontaneous
  Country: US (occurrence: US)
  Receive Date: 20170310
  Receipt Date: 20170614
  Transmission Date: 20170830
  Serious: Yes (Death, Other)
  Sender: FDA-Public Use
  Company Number: US-PFIZER INC-2017101089

PATIENT
  Age: 42 Year
  Sex: Male

DRUGS (5)
  1. DEXTROMETHORPHAN HYDROBROMIDE. [Suspect]
     Active Substance: DEXTROMETHORPHAN HYDROBROMIDE
     Dosage: UNK
  2. COCAINE [Concomitant]
     Active Substance: COCAINE
     Dosage: UNK
  3. DEXTROMETHORPHAN HYDROBROMIDE. [Suspect]
     Active Substance: DEXTROMETHORPHAN HYDROBROMIDE
     Dosage: WENT TO LARGE AMOUNT(LIKE 40 BOTTLES A DAY)
     Dates: start: 2016
  4. DEXTROMETHORPHAN HYDROBROMIDE. [Suspect]
     Active Substance: DEXTROMETHORPHAN HYDROBROMIDE
     Indication: VIRAL UPPER RESPIRATORY TRACT INFECTION
     Dosage: NORMAL DOSE
     Dates: start: 201604, end: 2016
  5. HEROIN [Concomitant]
     Active Substance: DIAMORPHINE
     Dosage: UNK, DAILY
     Dates: end: 20161015

REACTIONS (7)
  - Hyperhidrosis [Unknown]
  - Pain [Unknown]
  - Completed suicide [Fatal]
  - Urinary retention [Unknown]
  - Drug use disorder [Not Recovered/Not Resolved]
  - Personality change [Unknown]
  - Psychotic disorder [Unknown]

NARRATIVE: CASE EVENT DATE: 2016
